FAERS Safety Report 11812167 (Version 1)
Quarter: 2015Q4

REPORT INFORMATION
  Report Type: Spontaneous
  Country: US (occurrence: US)
  Receive Date: 20151208
  Receipt Date: 20151208
  Transmission Date: 20160305
  Serious: Yes (Other)
  Sender: FDA-Public Use
  Company Number: US-TEVA-614897USA

PATIENT
  Age: 50 Month
  Sex: Male

DRUGS (4)
  1. GEMCITABINE [Suspect]
     Active Substance: GEMCITABINE\GEMCITABINE HYDROCHLORIDE
     Indication: INFANTILE HAEMANGIOMA
     Dosage: 42.8571 MG/M2 DAILY; DAY 1 AND 8
     Route: 065
  2. DOCETAXEL. [Suspect]
     Active Substance: DOCETAXEL
     Indication: INFANTILE HAEMANGIOMA
     Dosage: 75 MG/M2 ON DAY 8- EVERY 3 WEEKS OF CYCLE
     Route: 065
  3. SORAFENIB [Suspect]
     Active Substance: SORAFENIB
     Indication: ANGIOSARCOMA
     Route: 048
  4. BEVACIZUMAB [Suspect]
     Active Substance: BEVACIZUMAB
     Indication: INFANTILE HAEMANGIOMA
     Dosage: 15 M/KG ON DAY 1- EVERY 3 WEEKS OF CYCLE
     Route: 065

REACTIONS (2)
  - Pleural effusion [Unknown]
  - Lymphoedema [Unknown]
